FAERS Safety Report 12986971 (Version 3)
Quarter: 2017Q1

REPORT INFORMATION
  Report Type: Spontaneous
  Country: US (occurrence: US)
  Receive Date: 20161130
  Receipt Date: 20170317
  Transmission Date: 20170428
  Serious: Yes (Hospitalization, Other)
  Sender: FDA-Public Use
  Company Number: US-PFIZER INC-2016554687

PATIENT
  Age: 71 Year
  Sex: Female
  Weight: 64.86 kg

DRUGS (9)
  1. OXYCONTIN [Suspect]
     Active Substance: OXYCODONE HYDROCHLORIDE
     Indication: PAIN
     Dosage: 30 MG, UNK (30 MG X 2)
     Dates: start: 20160815, end: 201611
  2. POTASSIUM [Concomitant]
     Active Substance: POTASSIUM
     Indication: BLOOD POTASSIUM DECREASED
     Dosage: 40 MG, 2X/DAY
     Route: 048
  3. VFEND [Suspect]
     Active Substance: VORICONAZOLE
     Indication: FUNGAL SKIN INFECTION
     Dosage: 200 MG, 2X/DAY
     Route: 048
     Dates: start: 20161028
  4. OXYCONTIN [Suspect]
     Active Substance: OXYCODONE HYDROCHLORIDE
     Indication: OSTEOMYELITIS
     Dosage: 30 MG, 2X/DAY
     Route: 048
     Dates: start: 20160813, end: 20161028
  5. COREG [Concomitant]
     Active Substance: CARVEDILOL
     Indication: HYPERTENSION
     Dosage: 25 MG, 2X/DAY
     Route: 048
  6. VFEND [Suspect]
     Active Substance: VORICONAZOLE
     Dosage: UNK
     Dates: start: 20161029, end: 20161226
  7. PRILOSEC [Concomitant]
     Active Substance: OMEPRAZOLE MAGNESIUM
     Indication: GASTROOESOPHAGEAL REFLUX DISEASE
     Dosage: 40 MG, 1X/DAY
     Route: 048
     Dates: start: 2006
  8. OXYCONTIN [Suspect]
     Active Substance: OXYCODONE HYDROCHLORIDE
     Indication: INFECTION
     Dosage: 15 MG, 2X/DAY
     Route: 048
     Dates: start: 20161029, end: 20161107
  9. PRAVASTATIN. [Concomitant]
     Active Substance: PRAVASTATIN
     Indication: BLOOD CHOLESTEROL INCREASED
     Dosage: 40 MG, 1X/DAY
     Route: 048
     Dates: start: 2014

REACTIONS (1)
  - Hallucination [Recovered/Resolved]

NARRATIVE: CASE EVENT DATE: 20161029
